FAERS Safety Report 6803235-3 (Version None)
Quarter: 2010Q2

REPORT INFORMATION
  Report Type: 
  Country: None (occurrence: None)
  Receive Date: 20100628
  Receipt Date: 20100616
  Transmission Date: 20101027
  Serious: Yes (Hospitalization)
  Sender: FDA-Public Use
  Company Number: B0662478A

PATIENT
  Sex: Female

DRUGS (7)
  1. DILATREND [Suspect]
     Dosage: 6.25MG PER DAY
     Route: 048
     Dates: start: 20070101
  2. KANRENOL [Suspect]
     Indication: HYPERTENSION
     Dosage: 100MG PER DAY
     Route: 048
     Dates: start: 20070101, end: 20100421
  3. TRIATEC [Suspect]
     Indication: HYPERTENSION
     Dosage: 5MG PER DAY
     Route: 048
     Dates: start: 20070101
  4. CLOPIDOGREL [Concomitant]
     Route: 065
     Dates: start: 20070101, end: 20100421
  5. LASIX [Concomitant]
     Route: 065
     Dates: start: 20070101, end: 20100421
  6. ASPIRIN [Concomitant]
     Route: 065
     Dates: start: 20070101, end: 20100421
  7. NOVOMIX [Concomitant]
     Route: 065
     Dates: start: 20100421

REACTIONS (4)
  - ASTHENIA [None]
  - HYPERKALAEMIA [None]
  - HYPOTENSION [None]
  - VISION BLURRED [None]
